FAERS Safety Report 6419401-5 (Version None)
Quarter: 2009Q4

REPORT INFORMATION
  Report Type: 
  Country: None (occurrence: None)
  Receive Date: 20091013
  Receipt Date: 20080905
  Transmission Date: 20100525
  Serious: Yes (Life-Threatening, Hospitalization, Other)
  Sender: FDA-Public Use
  Company Number: S08-USA-02237-01

PATIENT
  Age: 34 Year
  Sex: Female
  Weight: 45.3597 kg

DRUGS (5)
  1. LEXAPRO [Suspect]
     Indication: ANXIETY
     Dosage: 20 MG (1 IN 1 D), ORAL : 30 MG (30 MG, DAILY), ORAL
     Route: 048
     Dates: end: 20080101
  2. LEXAPRO [Suspect]
     Indication: DEPRESSION
     Dosage: 20 MG (1 IN 1 D), ORAL : 30 MG (30 MG, DAILY), ORAL
     Route: 048
     Dates: end: 20080101
  3. ANTIBIOTIC (NOS) [Suspect]
     Indication: RESPIRATORY TRACT INFECTION
  4. CLONAZEPAM [Concomitant]
  5. INHALER [Concomitant]

REACTIONS (5)
  - ANAPHYLACTIC REACTION [None]
  - DRUG HYPERSENSITIVITY [None]
  - GASTROOESOPHAGEAL REFLUX DISEASE [None]
  - OVERDOSE [None]
  - RESPIRATORY TRACT INFECTION [None]
